FAERS Safety Report 20938376 (Version 1)
Quarter: 2022Q2

REPORT INFORMATION
  Report Type: Other
  Country: CA (occurrence: CA)
  Receive Date: 20220609
  Receipt Date: 20220609
  Transmission Date: 20220721
  Serious: Yes (Life-Threatening, Hospitalization, Other)
  Sender: FDA-Public Use
  Company Number: CA-APOTEX-2022AP008831

PATIENT
  Age: 70 Year
  Sex: Female

DRUGS (2)
  1. DIPHENHYDRAMINE [Suspect]
     Active Substance: DIPHENHYDRAMINE
     Indication: Product used for unknown indication
     Dosage: 25 MILLIGRAM, Q.12H
     Route: 065
  2. DULCOLAX (BISACODYL) [Suspect]
     Active Substance: BISACODYL
     Indication: Constipation
     Dosage: 5 MILLIGRAM, QD
     Route: 065

REACTIONS (10)
  - Anaphylactic shock [Recovered/Resolved]
  - Condition aggravated [Recovered/Resolved]
  - Expired product administered [Recovered/Resolved]
  - Eye discharge [Recovered/Resolved]
  - Eye swelling [Recovered/Resolved]
  - Pharyngeal swelling [Recovered/Resolved]
  - Pruritus [Recovered/Resolved]
  - Swollen tongue [Recovered/Resolved]
  - Tongue erythema [Recovered/Resolved]
  - Tongue rough [Recovered/Resolved]
